FAERS Safety Report 15542231 (Version 1)
Quarter: 2018Q4

REPORT INFORMATION
  Report Type: Spontaneous
  Country: CA (occurrence: CA)
  Receive Date: 20181023
  Receipt Date: 20181023
  Transmission Date: 20190205
  Serious: Yes (Hospitalization)
  Sender: FDA-Public Use
  Company Number: CA-PHARMACEUTICS INTERNATIONAL, INC. (PII)-2018PII000026

PATIENT

DRUGS (6)
  1. POTASSIUM CHLORIDE USP [Suspect]
     Active Substance: POTASSIUM CHLORIDE
     Indication: FOETICIDE
     Dosage: 2 MMOL PER ML
     Route: 065
  2. LEUCOVORIN                         /00566701/ [Suspect]
     Active Substance: LEUCOVORIN
     Indication: ECTOPIC PREGNANCY
  3. METHOTREXATE. [Suspect]
     Active Substance: METHOTREXATE
     Indication: ECTOPIC PREGNANCY
  4. METHOTREXATE. [Suspect]
     Active Substance: METHOTREXATE
     Indication: FOETICIDE
     Dosage: 1 MG/KG, QD
     Route: 065
  5. POTASSIUM CHLORIDE USP [Suspect]
     Active Substance: POTASSIUM CHLORIDE
     Indication: ECTOPIC PREGNANCY
  6. LEUCOVORIN                         /00566701/ [Suspect]
     Active Substance: LEUCOVORIN
     Indication: FOETICIDE
     Dosage: 0.1 MG/KG, QD
     Route: 065

REACTIONS (3)
  - Arteriovenous malformation [Unknown]
  - Vaginal haemorrhage [Unknown]
  - Haemoglobin decreased [Unknown]
